FAERS Safety Report 25245676 (Version 1)
Quarter: 2025Q2

REPORT INFORMATION
  Report Type: Spontaneous
  Country: US (occurrence: None)
  Receive Date: 20250426
  Receipt Date: 20250426
  Transmission Date: 20250717
  Serious: No
  Sender: FDA-CTU
  Company Number: None

PATIENT
  Age: 76 Year
  Sex: Male
  Weight: 96 kg

DRUGS (2)
  1. DEXAMETHASONE [Suspect]
     Active Substance: DEXAMETHASONE
  2. LENALIDOMIDE [Suspect]
     Active Substance: LENALIDOMIDE

REACTIONS (7)
  - Syncope [None]
  - Dyspnoea [None]
  - Cerebral small vessel ischaemic disease [None]
  - Lacunar infarction [None]
  - Benign enlargement of the subarachnoid spaces [None]
  - Lung opacity [None]
  - Cough [None]

NARRATIVE: CASE EVENT DATE: 20250424
